FAERS Safety Report 4575513-2 (Version None)
Quarter: 2005Q1

REPORT INFORMATION
  Report Type: 
  Country: None (occurrence: None)
  Receive Date: 20050131
  Receipt Date: 20050131
  Transmission Date: 20050727
  Serious: Yes (Death)
  Sender: FDA-Public Use
  Company Number: None

PATIENT

DRUGS (4)
  1. OXYCONTIN [Suspect]
     Indication: ARTHRALGIA
     Dosage: 80MG  OFTEN
     Dates: start: 20041129, end: 20051228
  2. OXYCONTIN [Suspect]
     Indication: HEADACHE
     Dosage: 80MG  OFTEN
     Dates: start: 20041129, end: 20051228
  3. OXYCONTIN [Suspect]
     Indication: PAIN
     Dosage: 80MG  OFTEN
     Dates: start: 20041129, end: 20051228
  4. OXYCONTIN [Suspect]
     Indication: ROTATOR CUFF REPAIR
     Dosage: 80MG  OFTEN
     Dates: start: 20041129, end: 20051228

REACTIONS (2)
  - CARDIAC ARREST [None]
  - DRUG DEPENDENCE [None]
